FAERS Safety Report 24568709 (Version 1)
Quarter: 2024Q4

REPORT INFORMATION
  Report Type: Spontaneous
  Country: US (occurrence: None)
  Receive Date: 20241030
  Receipt Date: 20241030
  Transmission Date: 20250115
  Serious: Yes (Hospitalization)
  Sender: Public
  Company Number: None

PATIENT
  Age: 4 Day
  Sex: Male
  Weight: 4.03 kg

DRUGS (2)
  1. BUPROPION [Suspect]
     Active Substance: BUPROPION
     Dates: start: 20201001, end: 20210520
  2. DEXTROAMPHETAMINE SACCHARATE, AMPHETAMINE ASPARTATE, DEXTROAMPHETAMINE [Suspect]
     Active Substance: DEXTROAMPHETAMINE SACCHARATE, AMPHETAMINE ASPARTATE, DEXTROAMPHETAMINE SULFATE AND AMPHETAMINE SULFA
     Dates: start: 20201001, end: 20200522

REACTIONS (4)
  - Maternal exposure during pregnancy [None]
  - Crying [None]
  - Grunting [None]
  - Penis disorder [None]

NARRATIVE: CASE EVENT DATE: 20210705
